FAERS Safety Report 18637166 (Version 1)
Quarter: 2020Q4

REPORT INFORMATION
  Report Type: Spontaneous
  Country: GB (occurrence: GB)
  Receive Date: 20201218
  Receipt Date: 20201218
  Transmission Date: 20210114
  Serious: Yes (Hospitalization)
  Sender: FDA-Public Use
  Company Number: GB-009507513-2012GBR004936

PATIENT
  Sex: Male

DRUGS (7)
  1. PREDNISOLONE. [Suspect]
     Active Substance: PREDNISOLONE
     Dosage: 15MG OM
  2. COLOMYCIN [COLISTIN SULFATE] [Suspect]
     Active Substance: COLISTIN SULFATE
     Dosage: 2000000 BD
  3. MYFENAX (DICLOFENAC DIETHYLAMINE) [Suspect]
     Active Substance: DICLOFENAC DIETHYLAMINE
     Dosage: 1G BD
  4. POSACONAZOLE [Suspect]
     Active Substance: POSACONAZOLE
     Dosage: 300 MILLIGRAM
     Route: 048
  5. COLOMYCIN [COLISTIN SULFATE] [Suspect]
     Active Substance: COLISTIN SULFATE
     Dosage: 2000000 BD
  6. MYFENAX (DICLOFENAC DIETHYLAMINE) [Suspect]
     Active Substance: DICLOFENAC DIETHYLAMINE
     Dosage: 1G BD
  7. PREDNISOLONE. [Suspect]
     Active Substance: PREDNISOLONE
     Dosage: 15MG OM

REACTIONS (1)
  - Infection [Unknown]
